FAERS Safety Report 7117289-0 (Version None)
Quarter: 2010Q4

REPORT INFORMATION
  Report Type: 
  Country: None (occurrence: None)
  Receive Date: 20101112
  Receipt Date: 20101101
  Transmission Date: 20110411
  Serious: Yes (Death)
  Sender: FDA-Public Use
  Company Number: 2010MA004101

PATIENT
  Age: 45 Year
  Sex: Female

DRUGS (6)
  1. OXYCODONE HCL [Suspect]
  2. PROPRANOLOL HCL [Suspect]
  3. DIAZEPAM [Suspect]
  4. VALPROIC ACID [Concomitant]
  5. ZOPICLONE [Concomitant]
  6. PREV MEDS [Concomitant]

REACTIONS (1)
  - OVERDOSE [None]
